FAERS Safety Report 9924827 (Version 1)
Quarter: 2014Q1

REPORT INFORMATION
  Report Type: Spontaneous
  Country: US (occurrence: None)
  Receive Date: 20140221
  Receipt Date: 20140221
  Transmission Date: 20141002
  Serious: Yes (Death, Congenital Anomaly)
  Sender: FDA-Public Use
  Company Number: 2014AP001344

PATIENT
  Sex: Male

DRUGS (2)
  1. PAROXETINE HCL TABLETS [Suspect]
  2. LEXAPRO [Suspect]

REACTIONS (6)
  - Congenital anomaly [None]
  - Cleft lip [None]
  - Hernia [None]
  - Maternal drugs affecting foetus [None]
  - Multiple injuries [None]
  - Hydrocele [None]
